FAERS Safety Report 24247926 (Version 1)
Quarter: 2024Q3

REPORT INFORMATION
  Report Type: Spontaneous
  Country: US (occurrence: US)
  Receive Date: 20240826
  Receipt Date: 20240826
  Transmission Date: 20241016
  Serious: Yes (Death, Life-Threatening, Hospitalization, Other)
  Sender: CHEPLAPHARM
  Company Number: US-ROCHE-10000053613

PATIENT
  Age: 58 Year
  Sex: Female
  Weight: 71.199 kg

DRUGS (2)
  1. CAPECITABINE [Suspect]
     Active Substance: CAPECITABINE
     Indication: Breast cancer
     Dosage: TWICE A DAY?DAILY DOSE: 3000 MILLIGRAM
     Route: 048
     Dates: start: 20240524, end: 20240719
  2. PEMBROLIZUMAB [Suspect]
     Active Substance: PEMBROLIZUMAB
     Indication: Breast cancer
     Route: 042
     Dates: start: 20240522, end: 20240719

REACTIONS (11)
  - Cardiac arrest [Fatal]
  - Dyspnoea [Not Recovered/Not Resolved]
  - Abdominal pain [Not Recovered/Not Resolved]
  - Metastases to liver [Unknown]
  - Metastases to bone [Unknown]
  - Ascites [Unknown]
  - Muscular weakness [Unknown]
  - Nausea [Unknown]
  - Cough [Unknown]
  - Headache [Unknown]
  - Pleural effusion [Unknown]

NARRATIVE: CASE EVENT DATE: 20240719
